FAERS Safety Report 7291293-4 (Version None)
Quarter: 2011Q1

REPORT INFORMATION
  Report Type: 
  Country: None (occurrence: None)
  Receive Date: 20110214
  Receipt Date: 20110211
  Transmission Date: 20110831
  Serious: Yes (Death, Hospitalization)
  Sender: FDA-Public Use
  Company Number: A0716466A

PATIENT
  Age: 74 Year
  Sex: Male
  Weight: 95.5 kg

DRUGS (8)
  1. AVANDIA [Suspect]
     Dosage: 4MG PER DAY
     Route: 048
     Dates: start: 20000101, end: 20070601
  2. ASPIRIN [Concomitant]
  3. METAMUCIL-2 [Concomitant]
  4. LIPITOR [Concomitant]
  5. INSULIN [Concomitant]
     Dates: end: 20070601
  6. LASIX [Concomitant]
  7. ATENOLOL [Concomitant]
  8. MULTI-VITAMIN [Concomitant]

REACTIONS (2)
  - MYOCARDIAL INFARCTION [None]
  - CORONARY ARTERY DISEASE [None]
